FAERS Safety Report 6886829-9 (Version None)
Quarter: 2010Q3

REPORT INFORMATION
  Report Type: 
  Country: None (occurrence: None)
  Receive Date: 20100730
  Receipt Date: 20100719
  Transmission Date: 20110219
  Serious: Yes (Other)
  Sender: FDA-Public Use
  Company Number: US-PFIZER INC-2010090704

PATIENT
  Sex: Female
  Weight: 82 kg

DRUGS (2)
  1. XALATAN [Suspect]
     Indication: GLAUCOMA
     Dosage: ONE DROP, DAILY, IN EACH EYE, AT NIGHT
     Route: 047
  2. ALPHAGAN [Concomitant]
     Indication: GLAUCOMA
     Dosage: UNK

REACTIONS (1)
  - CATARACT [None]
